FAERS Safety Report 18519535 (Version 2)
Quarter: 2021Q1

REPORT INFORMATION
  Report Type: Report from Study
  Country: GB (occurrence: GB)
  Receive Date: 20201118
  Receipt Date: 20210217
  Transmission Date: 20210419
  Serious: Yes (Hospitalization)
  Sender: FDA-Public Use
  Company Number: GB-ASTRAZENECA-2019SF83805

PATIENT
  Age: 28841 Day
  Sex: Male

DRUGS (35)
  1. AZD6738 [Suspect]
     Active Substance: CERALASERTIB
     Indication: NEOPLASM
     Route: 048
     Dates: start: 20200507, end: 20200520
  2. MEDI4736 [Suspect]
     Active Substance: DURVALUMAB
     Indication: NEOPLASM
     Dosage: 1500.0MG ONCE/SINGLE ADMINISTRATION
     Route: 042
     Dates: start: 20200618, end: 20200618
  3. AZD6738 [Suspect]
     Active Substance: CERALASERTIB
     Indication: NEOPLASM
     Route: 048
     Dates: start: 20191203, end: 20191211
  4. AZD6738 [Suspect]
     Active Substance: CERALASERTIB
     Indication: NEOPLASM
     Route: 048
     Dates: start: 20201022, end: 20201104
  5. MEDI4736 [Suspect]
     Active Substance: DURVALUMAB
     Indication: NEOPLASM
     Dosage: 1500.0MG ONCE/SINGLE ADMINISTRATION
     Route: 042
     Dates: start: 20201008, end: 20201008
  6. AZD6738 [Suspect]
     Active Substance: CERALASERTIB
     Indication: NEOPLASM
     Route: 048
     Dates: start: 20200220, end: 20200222
  7. AZD6738 [Suspect]
     Active Substance: CERALASERTIB
     Indication: NEOPLASM
     Route: 048
     Dates: start: 20200924, end: 20201007
  8. MEDI4736 [Suspect]
     Active Substance: DURVALUMAB
     Indication: NEOPLASM
     Dosage: 1500.0MG ONCE/SINGLE ADMINISTRATION
     Route: 042
     Dates: start: 20191114, end: 20191114
  9. MEDI4736 [Suspect]
     Active Substance: DURVALUMAB
     Indication: NEOPLASM
     Dosage: 1500.0MG ONCE/SINGLE ADMINISTRATION
     Route: 042
     Dates: start: 20191212, end: 20191212
  10. MEDI4736 [Suspect]
     Active Substance: DURVALUMAB
     Indication: NEOPLASM
     Dosage: 1500.0MG ONCE/SINGLE ADMINISTRATION
     Route: 042
     Dates: start: 20200521, end: 20200521
  11. MEDI4736 [Suspect]
     Active Substance: DURVALUMAB
     Indication: NEOPLASM
     Dosage: 1500.0MG ONCE/SINGLE ADMINISTRATION
     Route: 042
     Dates: start: 20200910, end: 20200910
  12. ASPIRIN. [Concomitant]
     Active Substance: ASPIRIN
     Indication: TRANSIENT ISCHAEMIC ATTACK
     Route: 048
     Dates: start: 20190910, end: 20191220
  13. COCODAMOL [Concomitant]
     Active Substance: ACETAMINOPHEN\CODEINE PHOSPHATE
     Indication: PAIN
     Dosage: AS REQUIRED
     Route: 048
     Dates: start: 20191113
  14. LOSARTAN. [Concomitant]
     Active Substance: LOSARTAN
     Indication: HYPERTENSION
     Route: 048
     Dates: start: 20191129
  15. AZD6738 [Suspect]
     Active Substance: CERALASERTIB
     Indication: NEOPLASM
     Route: 048
     Dates: start: 20191128, end: 20191201
  16. AZD6738 [Suspect]
     Active Substance: CERALASERTIB
     Indication: NEOPLASM
     Route: 048
     Dates: start: 20200806, end: 20200812
  17. MEDI4736 [Suspect]
     Active Substance: DURVALUMAB
     Indication: NEOPLASM
     Dosage: 1500.0MG ONCE/SINGLE ADMINISTRATION
     Route: 042
     Dates: start: 20200109, end: 20200109
  18. MEDI4736 [Suspect]
     Active Substance: DURVALUMAB
     Indication: NEOPLASM
     Dosage: 1500.0MG ONCE/SINGLE ADMINISTRATION
     Route: 042
     Dates: start: 20200206, end: 20200206
  19. MEDI4736 [Suspect]
     Active Substance: DURVALUMAB
     Indication: NEOPLASM
     Dosage: 1500.0MG ONCE/SINGLE ADMINISTRATION
     Route: 042
     Dates: start: 20200716, end: 20200716
  20. MEDI4736 [Suspect]
     Active Substance: DURVALUMAB
     Indication: NEOPLASM
     Dosage: 1500.0MG ONCE/SINGLE ADMINISTRATION
     Route: 042
     Dates: start: 20200813, end: 20200813
  21. AZD6738 [Suspect]
     Active Substance: CERALASERTIB
     Indication: NEOPLASM
     Route: 048
     Dates: start: 20191202, end: 20191202
  22. AZD6738 [Suspect]
     Active Substance: CERALASERTIB
     Indication: NEOPLASM
     Route: 048
     Dates: start: 20200604, end: 20200617
  23. AZD6738 [Suspect]
     Active Substance: CERALASERTIB
     Indication: NEOPLASM
     Route: 048
     Dates: start: 20200827, end: 20200909
  24. MEDI4736 [Suspect]
     Active Substance: DURVALUMAB
     Indication: NEOPLASM
     Dosage: 1500.0MG ONCE/SINGLE ADMINISTRATION
     Route: 042
     Dates: start: 20200423, end: 20200423
  25. DAKTACORT [Concomitant]
     Active Substance: HYDROCORTISONE\MICONAZOLE NITRATE
     Indication: RASH
     Dosage: 1 APPLICATION TWO TIMES A DAY
     Route: 003
     Dates: start: 201906, end: 202001
  26. LAXIDO [Concomitant]
     Active Substance: POLYETHYLENE GLYCOL 3350\POTASSIUM CHLORIDE\SODIUM BICARBONATE\SODIUM CHLORIDE
     Indication: CONSTIPATION
     Dosage: 1 SACHET AS REQUIRED
     Route: 048
     Dates: start: 20191113
  27. FAMOTIDINE. [Concomitant]
     Active Substance: FAMOTIDINE
     Indication: DYSPEPSIA
     Route: 048
     Dates: start: 20191212
  28. AZD6738 [Suspect]
     Active Substance: CERALASERTIB
     Indication: NEOPLASM
     Route: 048
     Dates: start: 20200702, end: 20200715
  29. AZD6738 [Suspect]
     Active Substance: CERALASERTIB
     Indication: NEOPLASM
     Route: 048
     Dates: start: 20201119, end: 20201202
  30. MEDI4736 [Suspect]
     Active Substance: DURVALUMAB
     Indication: NEOPLASM
     Dosage: 1500.0MG ONCE/SINGLE ADMINISTRATION
     Route: 042
     Dates: start: 20201105, end: 20201105
  31. MEDI4736 [Suspect]
     Active Substance: DURVALUMAB
     Indication: NEOPLASM
     Dosage: 1500.0MG ONCE/SINGLE ADMINISTRATION
     Route: 042
     Dates: start: 20201203, end: 20201203
  32. AZD6738 [Suspect]
     Active Substance: CERALASERTIB
     Indication: NEOPLASM
     Route: 048
     Dates: start: 20191107, end: 20191113
  33. AZD6738 [Suspect]
     Active Substance: CERALASERTIB
     Indication: NEOPLASM
     Route: 048
     Dates: start: 20200123, end: 20200205
  34. AZD6738 [Suspect]
     Active Substance: CERALASERTIB
     Indication: NEOPLASM
     Route: 048
     Dates: start: 20200409, end: 20200422
  35. METOCLOPRAMIDE. [Concomitant]
     Active Substance: METOCLOPRAMIDE
     Indication: NAUSEA
     Route: 048
     Dates: start: 20191111

REACTIONS (2)
  - Thrombocytopenia [Recovered/Resolved]
  - Haemoptysis [Recovered/Resolved]

NARRATIVE: CASE EVENT DATE: 20191214
